FAERS Safety Report 4402981-9 (Version None)
Quarter: 2004Q3

REPORT INFORMATION
  Report Type: 
  Country: None (occurrence: None)
  Receive Date: 20040721
  Receipt Date: 20030826
  Transmission Date: 20050211
  Serious: Yes (Hospitalization)
  Sender: FDA-Public Use
  Company Number: US-GLAXOSMITHKLINE-A0423640A

PATIENT
  Sex: Female

DRUGS (3)
  1. IMITREX [Suspect]
     Indication: MIGRAINE
     Dosage: 1TAB TWICE PER DAY
     Route: 048
     Dates: start: 20030811, end: 20030812
  2. PERCOCET [Concomitant]
  3. IMITREX [Suspect]
     Route: 058
     Dates: start: 20030812, end: 20030812

REACTIONS (2)
  - DRUG INEFFECTIVE [None]
  - ERYTHEMA [None]
